FAERS Safety Report 18349685 (Version 1)
Quarter: 2020Q4

REPORT INFORMATION
  Report Type: Spontaneous
  Country: US (occurrence: US)
  Receive Date: 20201006
  Receipt Date: 20201006
  Transmission Date: 20210114
  Serious: No
  Sender: FDA-Public Use
  Company Number: US-PFIZER INC-2020378750

PATIENT
  Age: 44 Year
  Sex: Female
  Weight: 98 kg

DRUGS (2)
  1. BRAFTOVI [Suspect]
     Active Substance: ENCORAFENIB
     Indication: MALIGNANT MELANOMA
     Dosage: 75 MG, 2X/DAY
  2. MEKTOVI [Concomitant]
     Active Substance: BINIMETINIB
     Dosage: UNK

REACTIONS (3)
  - Wrong technique in product usage process [Unknown]
  - Dysphagia [Unknown]
  - Product dose omission issue [Unknown]

NARRATIVE: CASE EVENT DATE: 20200930
